FAERS Safety Report 7031473-6 (Version None)
Quarter: 2010Q4

REPORT INFORMATION
  Report Type: 
  Country: None (occurrence: None)
  Receive Date: 20101006
  Receipt Date: 20100929
  Transmission Date: 20110411
  Serious: Yes (Other)
  Sender: FDA-Public Use
  Company Number: US-PFIZER INC-2010124809

PATIENT
  Sex: Male

DRUGS (1)
  1. CHANTIX [Suspect]
     Dosage: UNK

REACTIONS (9)
  - ANGER [None]
  - DEPERSONALISATION [None]
  - DYSLEXIA [None]
  - GENDER IDENTITY DISORDER [None]
  - HALLUCINATION [None]
  - HOMICIDAL IDEATION [None]
  - PARANOIA [None]
  - SUICIDAL IDEATION [None]
  - VIOLENCE-RELATED SYMPTOM [None]
